FAERS Safety Report 8545858 (Version 4)
Quarter: 2013Q4

REPORT INFORMATION
  Report Type: Report from Study
  Country: FR (occurrence: FR)
  Receive Date: 20120504
  Receipt Date: 20131014
  Transmission Date: 20140711
  Serious: Yes (Other)
  Sender: FDA-Public Use
  Company Number: FR-BIOGENIDEC-2012BI014946

PATIENT
  Age: 31 Year
  Sex: Female
  Weight: 67 kg

DRUGS (5)
  1. TYSABRI [Suspect]
     Indication: MULTIPLE SCLEROSIS
     Route: 042
     Dates: start: 20081204
  2. MODAFINIL [Concomitant]
  3. VITAMIN D [Concomitant]
     Indication: HYPOVITAMINOSIS
     Route: 048
  4. EBASTINE [Concomitant]
     Indication: HYPERSENSITIVITY
     Route: 048
  5. CLONAZEPAM [Concomitant]
     Indication: PAIN
     Route: 048

REACTIONS (1)
  - Pulmonary mass [Recovered/Resolved]
